FAERS Safety Report 20120756 (Version 2)
Quarter: 2023Q1

REPORT INFORMATION
  Report Type: Other
  Country: CA (occurrence: CA)
  Receive Date: 20211126
  Receipt Date: 20230121
  Transmission Date: 20230418
  Serious: Yes (Other)
  Sender: FDA-Public Use
  Company Number: CA-CELLTRION INC.-2021CA015756

PATIENT

DRUGS (48)
  1. RITUXIMAB [Suspect]
     Active Substance: RITUXIMAB
     Indication: Immunoglobulin G4 related disease
     Dosage: 1000 MILLIGRAM
     Route: 042
  2. RITUXIMAB [Suspect]
     Active Substance: RITUXIMAB
     Indication: Rheumatoid arthritis
     Dosage: 1000 MILLIGRAM, CYCLIC
     Route: 042
  3. ACETAMINOPHEN [Concomitant]
     Active Substance: ACETAMINOPHEN
     Indication: Premedication
     Dosage: 650 MILLIGRAM
     Route: 048
  4. ACYCLOVIR [Concomitant]
     Active Substance: ACYCLOVIR
  5. ADVAIR HFA [Concomitant]
     Active Substance: FLUTICASONE PROPIONATE\SALMETEROL XINAFOATE
  6. EBASTINE [Concomitant]
     Active Substance: EBASTINE
     Dosage: 5 MILLIGRAM
     Route: 048
  7. EBASTINE [Concomitant]
     Active Substance: EBASTINE
     Dosage: 50 MILLIGRAM
     Route: 048
  8. EBASTINE [Concomitant]
     Active Substance: EBASTINE
     Dosage: 5 MILLIGRAM
     Route: 048
  9. ALTEPLASE [Concomitant]
     Active Substance: ALTEPLASE
     Route: 065
  10. ATORVASTATIN [Concomitant]
     Active Substance: ATORVASTATIN
  11. ATORVASTATIN CALCIUM [Concomitant]
     Active Substance: ATORVASTATIN CALCIUM
  12. BENADRYL [Concomitant]
     Active Substance: DIPHENHYDRAMINE HYDROCHLORIDE
     Dosage: 50 MG
     Route: 042
  13. BENADRYL [Concomitant]
     Active Substance: DIPHENHYDRAMINE HYDROCHLORIDE
     Dosage: 50 MILLIGRAM
     Route: 042
  14. BENADRYL [Concomitant]
     Active Substance: DIPHENHYDRAMINE HYDROCHLORIDE
     Dosage: 25 MILLIGRAM
     Route: 042
  15. BENADRYL [Concomitant]
     Active Substance: DIPHENHYDRAMINE HYDROCHLORIDE
     Dosage: 50 MILLIGRAM
     Route: 042
  16. BENADRYL [Concomitant]
     Active Substance: DIPHENHYDRAMINE HYDROCHLORIDE
     Dosage: 50 MILLIGRAM
     Route: 048
  17. BISACODYL [Concomitant]
     Active Substance: BISACODYL
     Route: 065
  18. CARBOXYMETHYLCELLULOSE [Concomitant]
     Active Substance: CARBOXYMETHYLCELLULOSE
  19. COLACE [Concomitant]
     Active Substance: DOCUSATE SODIUM
  20. DALTEPARIN SODIUM [Concomitant]
     Active Substance: DALTEPARIN SODIUM
  21. DIMENHYDRINATE [Concomitant]
     Active Substance: DIMENHYDRINATE
     Dosage: 100 UNK
  22. DIPHENHYDRAMINE [Concomitant]
     Active Substance: DIPHENHYDRAMINE
     Indication: Premedication
     Dosage: 100 MILLIGRAM
     Route: 042
  23. ERYTHROMYCIN [Concomitant]
     Active Substance: ERYTHROMYCIN
  24. ESTRADIOL [Concomitant]
     Active Substance: ESTRADIOL
  25. FAMOTIDINE [Concomitant]
     Active Substance: FAMOTIDINE
     Indication: Premedication
     Dosage: 20 MILLIGRAM
     Route: 042
  26. FUROSEMIDE [Concomitant]
     Active Substance: FUROSEMIDE
     Route: 065
  27. GRAVOL [Concomitant]
     Active Substance: DIMENHYDRINATE
     Dosage: 75 MG
     Route: 042
  28. GRAVOL [Concomitant]
     Active Substance: DIMENHYDRINATE
     Dosage: UNK
     Route: 042
  29. GRAVOL [Concomitant]
     Active Substance: DIMENHYDRINATE
     Dosage: 50 MILLIGRAM
     Route: 042
  30. HYDROMORPHONE [Concomitant]
     Active Substance: HYDROMORPHONE
  31. LACTULOSE [Concomitant]
     Active Substance: LACTULOSE
  32. LEVOFLOXACIN [Concomitant]
     Active Substance: LEVOFLOXACIN
  33. LORAZEPAM [Concomitant]
     Active Substance: LORAZEPAM
     Route: 065
  34. POLYETHYLENE GLYCOL 400\PROPYLENE GLYCOL [Concomitant]
     Active Substance: POLYETHYLENE GLYCOL 400\PROPYLENE GLYCOL
  35. METHYLPREDNISOLONE [Concomitant]
     Active Substance: METHYLPREDNISOLONE
     Indication: Premedication
     Dosage: 100 MILLIGRAM
     Route: 042
  36. METOCLOPRAMIDE HYDROCHLORIDE [Concomitant]
     Active Substance: METOCLOPRAMIDE HYDROCHLORIDE
     Indication: Premedication
     Dosage: 5 MILLIGRAM
     Route: 042
  37. METRONIDAZOLE [Concomitant]
     Active Substance: METRONIDAZOLE
  38. MIRTAZAPINE [Concomitant]
     Active Substance: MIRTAZAPINE
  39. MOMETASONE [Concomitant]
     Active Substance: MOMETASONE
  40. MONTELUKAST [Concomitant]
     Active Substance: MONTELUKAST SODIUM
  41. NALOXONE [Concomitant]
     Active Substance: NALOXONE
     Route: 065
  42. ONDANSETRON [Concomitant]
     Active Substance: ONDANSETRON
     Dosage: 8 MILLIGRAM
     Route: 048
  43. ONDANSETRON [Concomitant]
     Active Substance: ONDANSETRON
     Dosage: 8 MILLIGRAM
     Route: 048
  44. PANTOPRAZOLE [Concomitant]
     Active Substance: PANTOPRAZOLE
  45. PREDNISONE [Concomitant]
     Active Substance: PREDNISONE
  46. ALBUTEROL [Concomitant]
     Active Substance: ALBUTEROL
  47. SPIRONOLACTONE [Concomitant]
     Active Substance: SPIRONOLACTONE
  48. VALSARTAN [Concomitant]
     Active Substance: VALSARTAN

REACTIONS (8)
  - Weight increased [Recovered/Resolved]
  - Flushing [Recovered/Resolved]
  - Infusion related reaction [Recovered/Resolved]
  - Nausea [Recovered/Resolved]
  - Pruritus [Recovered/Resolved]
  - Intentional product use issue [Recovered/Resolved]
  - Off label use [Recovered/Resolved]
  - Off label use [Unknown]
